FAERS Safety Report 24142291 (Version 1)
Quarter: 2024Q3

REPORT INFORMATION
  Report Type: Spontaneous
  Country: US (occurrence: US)
  Receive Date: 20240726
  Receipt Date: 20240726
  Transmission Date: 20241016
  Serious: Yes (Life-Threatening, Hospitalization, Other)
  Sender: BRISTOL MYERS SQUIBB
  Company Number: US-BRISTOL-MYERS SQUIBB COMPANY-2024-116549

PATIENT
  Age: 61 Year
  Sex: Male

DRUGS (1)
  1. BREYANZI [Suspect]
     Active Substance: LISOCABTAGENE MARALEUCEL
     Indication: High grade B-cell lymphoma refractory
     Route: 042
     Dates: start: 20240403

REACTIONS (8)
  - Cytokine release syndrome [Recovering/Resolving]
  - Drug reaction with eosinophilia and systemic symptoms [Recovering/Resolving]
  - Human herpesvirus 6 viraemia [Recovered/Resolved]
  - Malignant neoplasm progression [Unknown]
  - Small intestinal obstruction [Unknown]
  - Pulmonary embolism [Unknown]
  - Gastroenteritis radiation [Unknown]
  - Cytopenia [Unknown]

NARRATIVE: CASE EVENT DATE: 20240101
